FAERS Safety Report 10437430 (Version 2)
Quarter: 2014Q3

REPORT INFORMATION
  Report Type: Spontaneous
  Country: US (occurrence: US)
  Receive Date: 20140908
  Receipt Date: 20140908
  Transmission Date: 20150326
  Serious: No
  Sender: FDA-Public Use
  Company Number: US-BRISTOL-MYERS SQUIBB COMPANY-20955027

PATIENT
  Age: 22 Year
  Sex: Male

DRUGS (4)
  1. ABILIFY [Suspect]
     Active Substance: ARIPIPRAZOLE
     Dosage: TOTAL: 5MG
     Route: 048
     Dates: start: 201404
  2. ABILIFY MAINTENA [Suspect]
     Active Substance: ARIPIPRAZOLE
     Indication: SCHIZOPHRENIA
     Dosage: 22MAY14- ONGOING
     Route: 030
     Dates: start: 20140422
  3. MULTIVITAMINS [Concomitant]
     Active Substance: VITAMINS
  4. RISPERIDONE. [Concomitant]
     Active Substance: RISPERIDONE

REACTIONS (5)
  - Anxiety [Unknown]
  - Somnolence [Recovered/Resolved]
  - Gastroenteritis viral [Recovered/Resolved]
  - Fatigue [Not Recovered/Not Resolved]
  - Drug administration error [Unknown]

NARRATIVE: CASE EVENT DATE: 2014
